FAERS Safety Report 5451351-3 (Version None)
Quarter: 2007Q3

REPORT INFORMATION
  Report Type: 
  Country: None (occurrence: None)
  Receive Date: 20070913
  Receipt Date: 20070829
  Transmission Date: 20080115
  Serious: Yes (Hospitalization)
  Sender: FDA-Public Use
  Company Number: JP-ASTRAZENECA-2007AP05075

PATIENT
  Age: 28820 Day
  Sex: Male

DRUGS (2)
  1. SEROQUEL [Suspect]
     Indication: SCHIZOPHRENIA
     Route: 048
     Dates: start: 20070801, end: 20070806
  2. NITRAZEPAM [Concomitant]
     Route: 048
     Dates: start: 20060101

REACTIONS (1)
  - CHOLESTASIS [None]
